FAERS Safety Report 18223177 (Version 1)
Quarter: 2020Q3

REPORT INFORMATION
  Report Type: Spontaneous
  Country: US (occurrence: US)
  Receive Date: 20200902
  Receipt Date: 20200902
  Transmission Date: 20201103
  Serious: Yes (Hospitalization)
  Sender: FDA-Public Use
  Company Number: None

PATIENT
  Age: 77 Year
  Sex: Female
  Weight: 81 kg

DRUGS (15)
  1. CENTRUM SILVER [Concomitant]
     Active Substance: MINERALS\VITAMINS
  2. ALLOPURINOL. [Concomitant]
     Active Substance: ALLOPURINOL
  3. FASLODEX [Concomitant]
     Active Substance: FULVESTRANT
  4. IBRANCE [Suspect]
     Active Substance: PALBOCICLIB
     Indication: BREAST CANCER
     Route: 048
     Dates: start: 20200720
  5. DOXYCYCLINE. [Concomitant]
     Active Substance: DOXYCYCLINE
  6. ADVIL [Concomitant]
     Active Substance: IBUPROFEN
  7. VITAMIN B12 [Concomitant]
     Active Substance: CYANOCOBALAMIN
  8. METFORMIN [Concomitant]
     Active Substance: METFORMIN HYDROCHLORIDE
  9. ONDANSETRON [Concomitant]
     Active Substance: ONDANSETRON
  10. FUROSEMIDE. [Concomitant]
     Active Substance: FUROSEMIDE
  11. CALCIUM [Concomitant]
     Active Substance: CALCIUM
  12. SIMVASTATIN. [Concomitant]
     Active Substance: SIMVASTATIN
  13. POTASSIUM CL ER [Concomitant]
     Active Substance: POTASSIUM CHLORIDE
  14. LOSARTAN. [Concomitant]
     Active Substance: LOSARTAN
  15. LEVOTHYROXINE. [Concomitant]
     Active Substance: LEVOTHYROXINE

REACTIONS (1)
  - Transient ischaemic attack [None]

NARRATIVE: CASE EVENT DATE: 20200814
